FAERS Safety Report 8018858 (Version 2)
Quarter: 2013Q3

REPORT INFORMATION
  Report Type: Spontaneous
  Country: US (occurrence: US)
  Receive Date: 20110701
  Receipt Date: 20130805
  Transmission Date: 20140515
  Serious: Yes (Hospitalization)
  Sender: FDA-Public Use
  Company Number: US-US-EMD SERONO, INC.-7067812

PATIENT
  Age: 62 Year
  Sex: Male

DRUGS (4)
  1. REBIF [Suspect]
     Indication: MULTIPLE SCLEROSIS
     Route: 058
     Dates: start: 20050606, end: 20110303
  2. REBIF [Suspect]
     Route: 058
     Dates: start: 20110622
  3. REBIF [Suspect]
     Route: 058
     Dates: start: 20110622
  4. UROXATRAL [Concomitant]
     Indication: URINARY INCONTINENCE

REACTIONS (6)
  - Pneumonia [Recovered/Resolved]
  - Chills [Recovered/Resolved]
  - Multiple sclerosis relapse [Recovered/Resolved]
  - Bronchitis [Recovered/Resolved]
  - White blood cell disorder [Unknown]
  - Headache [Unknown]
